FAERS Safety Report 9596673 (Version 2)
Quarter: 2014Q1

REPORT INFORMATION
  Report Type: Spontaneous
  Country: US (occurrence: US)
  Receive Date: 20131004
  Receipt Date: 20140110
  Transmission Date: 20141002
  Serious: Yes (Hospitalization)
  Sender: FDA-Public Use
  Company Number: US-GLAXOSMITHKLINE-A1021697A

PATIENT
  Age: 51 Year
  Sex: Female

DRUGS (1)
  1. ARIXTRA [Suspect]
     Indication: ANTICOAGULANT THERAPY
     Dosage: 7.5MG UNKNOWN
     Route: 065
     Dates: start: 20121219

REACTIONS (6)
  - Investigation [Recovered/Resolved]
  - Emergency care examination [Unknown]
  - Weight decreased [Unknown]
  - Ulcer [Unknown]
  - Gastritis [Unknown]
  - Thrombosis [Unknown]
